FAERS Safety Report 15851329 (Version 1)
Quarter: 2019Q1

REPORT INFORMATION
  Report Type: Spontaneous
  Country: US (occurrence: US)
  Receive Date: 20190122
  Receipt Date: 20190122
  Transmission Date: 20190417
  Serious: Yes (Life-Threatening, Other)
  Sender: FDA-Public Use
  Company Number: US-CIPLA LTD.-2019US00268

PATIENT

DRUGS (1)
  1. WARFARIN [Suspect]
     Active Substance: WARFARIN
     Indication: ATRIAL FIBRILLATION
     Dosage: UNK
     Route: 065

REACTIONS (4)
  - Anaemia [Recovering/Resolving]
  - Gastrointestinal haemorrhage [Unknown]
  - Melaena [Recovered/Resolved]
  - Haematochezia [Recovered/Resolved]
